FAERS Safety Report 12574613 (Version 2)
Quarter: 2016Q3

REPORT INFORMATION
  Report Type: Spontaneous
  Country: US (occurrence: US)
  Receive Date: 20160720
  Receipt Date: 20160728
  Transmission Date: 20161109
  Serious: Yes (Other)
  Sender: FDA-Public Use
  Company Number: US-BAYER-2016-136334

PATIENT
  Age: 69 Year
  Sex: Female

DRUGS (1)
  1. CIPRO [Suspect]
     Active Substance: CIPROFLOXACIN HYDROCHLORIDE
     Indication: DIVERTICULITIS
     Dosage: UNK

REACTIONS (8)
  - Neuropathy peripheral [None]
  - Monoparesis [None]
  - Peroneal nerve palsy [None]
  - Abasia [None]
  - Paralysis [None]
  - Joint range of motion decreased [None]
  - Tendon rupture [None]
  - Off label use [None]
